FAERS Safety Report 5869216-1 (Version None)
Quarter: 2008Q3

REPORT INFORMATION
  Report Type: 
  Country: None (occurrence: None)
  Receive Date: 20080903
  Receipt Date: 20080821
  Transmission Date: 20090109
  Serious: Yes (Hospitalization)
  Sender: FDA-Public Use
  Company Number: US-ELI_LILLY_AND_COMPANY-US200808005302

PATIENT
  Sex: Female
  Weight: 68.934 kg

DRUGS (7)
  1. BYETTA [Suspect]
     Indication: TYPE 2 DIABETES MELLITUS
     Dosage: 5 UG, 2/D
     Route: 058
     Dates: start: 20060801, end: 20060901
  2. BYETTA [Suspect]
     Dosage: 10 UG, 2/D
     Route: 058
     Dates: start: 20060901
  3. FORTEO [Concomitant]
     Dosage: 20 UG, DAILY (1/D)
     Route: 058
     Dates: start: 20080101
  4. CORTISONE [Concomitant]
     Indication: PAIN
     Dates: start: 20080101
  5. METFORMIN HCL [Concomitant]
     Dosage: 1000 MG, 2/D
  6. STARLIX [Concomitant]
     Indication: TYPE 2 DIABETES MELLITUS
     Dosage: 120 MG, DAILY (1/D)
     Dates: start: 20080601
  7. NOVOLOG [Concomitant]
     Indication: TYPE 2 DIABETES MELLITUS
     Dosage: UNK, AS NEEDED
     Route: 058
     Dates: start: 20080821

REACTIONS (6)
  - BLOOD GLUCOSE INCREASED [None]
  - FALL [None]
  - MUSCLE INJURY [None]
  - MUSCLE SPASMS [None]
  - PAIN [None]
  - THORACIC VERTEBRAL FRACTURE [None]
